FAERS Safety Report 25808362 (Version 1)
Quarter: 2025Q3

REPORT INFORMATION
  Report Type: Spontaneous
  Country: US (occurrence: None)
  Receive Date: 20250916
  Receipt Date: 20250916
  Transmission Date: 20251021
  Serious: Yes (Other)
  Sender: FDA-CTU
  Company Number: None

PATIENT
  Sex: Male

DRUGS (6)
  1. LENALIDOMIDE [Suspect]
     Active Substance: LENALIDOMIDE
     Indication: Plasma cell myeloma
     Dosage: TAKE 1 CAPSULE BY MOUTH DAILY FOR 21 DAYS ON THEN 7 DAYS OFF?
     Route: 048
     Dates: start: 20250522
  2. FORADIL CAP AEROLIZE [Concomitant]
  3. FUROSEMIDE [Concomitant]
     Active Substance: FUROSEMIDE
  4. LISINOPRIL [Concomitant]
     Active Substance: LISINOPRIL
  5. MULTIVITAMIN CAP DAILY [Concomitant]
  6. PANTOPRAZOLE TAB 40MG [Concomitant]

REACTIONS (2)
  - Neoplasm malignant [None]
  - Neoplasm recurrence [None]
